FAERS Safety Report 12225703 (Version 4)
Quarter: 2017Q1

REPORT INFORMATION
  Report Type: Report from Study
  Country: US (occurrence: US)
  Receive Date: 20160331
  Receipt Date: 20170127
  Transmission Date: 20170428
  Serious: Yes (Other)
  Sender: FDA-Public Use
  Company Number: PHEH2013US015432

PATIENT
  Age: 24 Year
  Sex: Male

DRUGS (2)
  1. AFINITOR [Suspect]
     Active Substance: EVEROLIMUS
     Indication: BRAIN NEOPLASM BENIGN
     Dosage: 7.5 MG, QD (DAILY)
     Route: 048
     Dates: start: 20101229
  2. AFINITOR [Suspect]
     Active Substance: EVEROLIMUS
     Indication: ASTROCYTOMA, LOW GRADE

REACTIONS (3)
  - Seizure [Recovered/Resolved]
  - Seizure [Recovered/Resolved]
  - Seizure [Recovering/Resolving]

NARRATIVE: CASE EVENT DATE: 20130715
